FAERS Safety Report 21192823 (Version 2)
Quarter: 2022Q3

REPORT INFORMATION
  Report Type: Spontaneous
  Country: US (occurrence: US)
  Receive Date: 20220810
  Receipt Date: 20220819
  Transmission Date: 20221027
  Serious: Yes (Hospitalization, Other)
  Sender: FDA-Public Use
  Company Number: US-BIOGEN-2022BI01145270

PATIENT
  Age: 46 Year
  Sex: Female
  Weight: 85.3 kg

DRUGS (10)
  1. TECFIDERA [Suspect]
     Active Substance: DIMETHYL FUMARATE
     Indication: Multiple sclerosis
     Dosage: STARTING DOSE
     Route: 050
     Dates: start: 2016, end: 2016
  2. TECFIDERA [Suspect]
     Active Substance: DIMETHYL FUMARATE
     Dosage: MAINTENANCE DOSE
     Route: 050
     Dates: start: 2016
  3. TECFIDERA [Suspect]
     Active Substance: DIMETHYL FUMARATE
     Dosage: MAINTENANCE DOSE
     Route: 050
     Dates: start: 20211207
  4. TECFIDERA [Suspect]
     Active Substance: DIMETHYL FUMARATE
     Route: 050
     Dates: start: 20160831
  5. CYANOCOBALAMIN [Concomitant]
     Active Substance: CYANOCOBALAMIN
     Indication: Product used for unknown indication
     Route: 050
  6. ERGOCALCIFEROL [Concomitant]
     Active Substance: ERGOCALCIFEROL
     Indication: Product used for unknown indication
     Route: 050
  7. NEURONTIN [Concomitant]
     Active Substance: GABAPENTIN
     Indication: Product used for unknown indication
     Dosage: 1 TAB ORAL AT BEDTIME
     Route: 050
     Dates: start: 20210430
  8. IBU [Concomitant]
     Active Substance: IBUPROFEN
     Indication: Product used for unknown indication
     Dosage: 1 TAB BY MOUTH EVERY 8H AS NEEDED FOR PAIN
     Route: 050
     Dates: start: 20181022
  9. MEDROL [Concomitant]
     Active Substance: METHYLPREDNISOLONE
     Indication: Product used for unknown indication
     Dosage: TAKE 6 TABLETS ON DAY 1 AS DIRECTED ON PACKAGE AND DECREASE BY 1 TAB EACH DAY FOR A TOTAL OF 6 DAYS
     Route: 050
     Dates: start: 20220404
  10. ZANAFLEX [Concomitant]
     Active Substance: TIZANIDINE HYDROCHLORIDE
     Indication: Product used for unknown indication
     Route: 050
     Dates: start: 20211115

REACTIONS (5)
  - Optic neuritis [Unknown]
  - Migraine [Unknown]
  - Multiple sclerosis relapse [Unknown]
  - Blindness unilateral [Unknown]
  - Burning sensation [Unknown]

NARRATIVE: CASE EVENT DATE: 20220301
